FAERS Safety Report 6530592 (Version 6)
Quarter: 2019Q4

REPORT INFORMATION
  Report Type: Spontaneous
  Country: GB (occurrence: GB)
  Receive Date: 20030506
  Receipt Date: 20191230
  Transmission Date: 20200122
  Serious: Yes (Disabling, Other)
  Sender: FDA-Public Use
  Company Number: GB-PFIZER INC-2003018155

PATIENT
  Age: 19 Year
  Sex: Female

DRUGS (1)
  1. DOXYCYCLINE HYCLATE. [Suspect]
     Active Substance: DOXYCYCLINE HYCLATE
     Indication: MALARIA PROPHYLAXIS
     Dosage: 100 MG, 1X/DAY
     Route: 048

REACTIONS (14)
  - Visual impairment [Not Recovered/Not Resolved]
  - Retinal exudates [Unknown]
  - Vomiting [Not Recovered/Not Resolved]
  - Optic atrophy [Not Recovered/Not Resolved]
  - Papilloedema [Not Recovered/Not Resolved]
  - Retinal exudates [Not Recovered/Not Resolved]
  - Visual acuity reduced [Not Recovered/Not Resolved]
  - Retinal haemorrhage [Not Recovered/Not Resolved]
  - Headache [Not Recovered/Not Resolved]
  - Colour vision tests abnormal [Not Recovered/Not Resolved]
  - Eye haemorrhage [Recovered/Resolved]
  - Visual field defect [Not Recovered/Not Resolved]
  - Idiopathic intracranial hypertension [Not Recovered/Not Resolved]
  - Vision blurred [Unknown]
